FAERS Safety Report 9677596 (Version 3)
Quarter: 2013Q4

REPORT INFORMATION
  Report Type: Spontaneous
  Country: JP (occurrence: JP)
  Receive Date: 20131108
  Receipt Date: 20131120
  Transmission Date: 20140711
  Serious: Yes (Hospitalization)
  Sender: FDA-Public Use
  Company Number: JP-TEVA-436594ISR

PATIENT
  Age: 88 Year
  Sex: Male
  Weight: 55 kg

DRUGS (6)
  1. DONEPEZIL HCL-OD,TAB,5MG [Suspect]
     Indication: DEMENTIA ALZHEIMER^S TYPE
     Dosage: 5 MILLIGRAM DAILY;
     Route: 048
     Dates: end: 20130930
  2. AMLODIPINE TABLETS 5MG NS [Concomitant]
     Indication: HYPERTENSION
     Dosage: 5 MILLIGRAM DAILY;
     Route: 048
  3. ODYNE TAB. 125MG [Concomitant]
     Indication: PROSTATE CANCER
     Dosage: 375 MILLIGRAM DAILY;
     Route: 048
  4. SODIUM RISEDRONATE TABLETS,17.5MG [Concomitant]
     Indication: OSTEOPOROSIS
     Route: 048
  5. FERROMIA,TAB,50MG [Concomitant]
     Indication: IRON DEFICIENCY ANAEMIA
     Dosage: 50 MILLIGRAM DAILY;
     Route: 048
  6. PURSENNID TABLETS 12MG [Concomitant]
     Indication: CONSTIPATION
     Dosage: 24 MILLIGRAM DAILY;
     Route: 048

REACTIONS (2)
  - Syncope [Recovering/Resolving]
  - Meningioma [Recovering/Resolving]
